FAERS Safety Report 19313658 (Version 6)
Quarter: 2021Q3

REPORT INFORMATION
  Report Type: Other
  Country: GB (occurrence: GB)
  Receive Date: 20210527
  Receipt Date: 20210921
  Transmission Date: 20211014
  Serious: Yes (Other)
  Sender: FDA-Public Use
  Company Number: GB-STRIDES ARCOLAB LIMITED-2021SP005840

PATIENT
  Age: 72 Year
  Sex: Male

DRUGS (9)
  1. ABIRATERONE ACETATE. [Suspect]
     Active Substance: ABIRATERONE ACETATE
     Indication: PROSTATE CANCER
     Dosage: 1000 MILLIGRAM PER DAY, TABLET
     Route: 048
     Dates: start: 20210113
  2. PREDNISOLONE. [Suspect]
     Active Substance: PREDNISOLONE
     Indication: PROSTATE CANCER
     Dosage: 5 MILLIGRAM PER DAY
     Route: 048
     Dates: start: 20210113
  3. ABIRATERONE ACETATE. [Suspect]
     Active Substance: ABIRATERONE ACETATE
     Dosage: 1000 MILLIGRAM PER DAY, TABLET
     Route: 048
     Dates: start: 20210113
  4. DEGARELIX [Concomitant]
     Active Substance: DEGARELIX
     Indication: HORMONE THERAPY
     Dosage: 80 MILLIGRAM PER MONTH
     Route: 058
  5. LERCANIDIPINE [Concomitant]
     Active Substance: LERCANIDIPINE
     Indication: HYPERTENSION
     Dosage: 10 MILLIGRAM, QD
     Route: 048
  6. LERCANIDIPINE [Concomitant]
     Active Substance: LERCANIDIPINE
     Dosage: 1 UNK, PER ONE DAY
     Route: 048
  7. INDAPAMIDE. [Suspect]
     Active Substance: INDAPAMIDE
     Indication: HYPERTENSION
     Dosage: 2.5 MILLIGRAM; UNK
     Route: 065
     Dates: start: 202106
  8. AMLODIPINE [Concomitant]
     Active Substance: AMLODIPINE BESYLATE
     Indication: HYPERTENSION
     Dosage: UNK
     Route: 048
  9. DEGARELIX [Concomitant]
     Active Substance: DEGARELIX
     Dosage: 1 UNK, ONE MONTH, QMO
     Route: 058

REACTIONS (17)
  - Pruritus [Unknown]
  - Peripheral swelling [Recovered/Resolved]
  - Blood potassium decreased [Unknown]
  - Alanine aminotransferase increased [Unknown]
  - Rash pruritic [Unknown]
  - Musculoskeletal chest pain [Recovered/Resolved]
  - Pain in extremity [Not Recovered/Not Resolved]
  - Blood bilirubin increased [Recovered/Resolved]
  - Joint swelling [Recovered/Resolved]
  - Oedema peripheral [Recovered/Resolved]
  - Metastases to spine [Unknown]
  - Abdominal discomfort [Unknown]
  - Paraesthesia [Unknown]
  - Back pain [Not Recovered/Not Resolved]
  - Chest pain [Not Recovered/Not Resolved]
  - Feeling cold [Unknown]
  - Chest pain [Recovered/Resolved]

NARRATIVE: CASE EVENT DATE: 2021
